FAERS Safety Report 5350641-2 (Version None)
Quarter: 2007Q2

REPORT INFORMATION
  Report Type: 
  Country: None (occurrence: None)
  Receive Date: 20070608
  Receipt Date: 20070524
  Transmission Date: 20071010
  Serious: Yes (Other)
  Sender: FDA-Public Use
  Company Number: BE-AVENTIS-200713944GDDC

PATIENT
  Age: 80 Year
  Sex: Male

DRUGS (3)
  1. TAXOTERE [Suspect]
     Route: 042
     Dates: start: 20061001, end: 20070401
  2. DIURETICS [Concomitant]
     Dosage: DOSE: UNK
  3. LOW DOSE CORTICOIDS [Concomitant]
     Dosage: DOSE: UNK

REACTIONS (3)
  - GAIT DISTURBANCE [None]
  - NEUROPATHY PERIPHERAL [None]
  - PARALYSIS [None]
